FAERS Safety Report 9461750 (Version 1)
Quarter: 2013Q3

REPORT INFORMATION
  Report Type: Spontaneous
  Country: US (occurrence: None)
  Receive Date: 20130815
  Receipt Date: 20130815
  Transmission Date: 20140515
  Serious: Yes (Life-Threatening, Hospitalization)
  Sender: FDA-Public Use
  Company Number: None

PATIENT
  Age: 25 Year
  Sex: Female
  Weight: 68.04 kg

DRUGS (1)
  1. LEVAQUIN [Suspect]
     Indication: URINARY TRACT INFECTION
     Route: 042
     Dates: start: 20130328, end: 20130328

REACTIONS (12)
  - Nausea [None]
  - Vomiting [None]
  - Diarrhoea [None]
  - White blood cell count [None]
  - Anaphylactic reaction [None]
  - Cough [None]
  - Dyspnoea [None]
  - Erythema [None]
  - Lip oedema [None]
  - Eye swelling [None]
  - Oxygen saturation decreased [None]
  - Heart rate increased [None]
